FAERS Safety Report 15438090 (Version 1)
Quarter: 2018Q3

REPORT INFORMATION
  Report Type: Spontaneous
  Country: BR (occurrence: BR)
  Receive Date: 20180928
  Receipt Date: 20180928
  Transmission Date: 20181010
  Serious: Yes (Other)
  Sender: FDA-Public Use
  Company Number: BR-ROCHE-2190724

PATIENT
  Sex: Female

DRUGS (3)
  1. ELIQUIS [Suspect]
     Active Substance: APIXABAN
     Indication: ANTICOAGULANT THERAPY
     Dosage: 2.5MG IN THE MORNING AND 2.5MG AT NIGHT
     Route: 048
     Dates: start: 2016
  2. LINSEED OIL [Concomitant]
     Active Substance: LINSEED OIL
     Indication: BLEPHARITIS
     Route: 048
     Dates: start: 2018
  3. RIVOTRIL [Suspect]
     Active Substance: CLONAZEPAM
     Indication: INSOMNIA
     Dosage: 1 TABLET
     Route: 048

REACTIONS (6)
  - Blood viscosity increased [Unknown]
  - Off label use [Unknown]
  - Atrial fibrillation [Unknown]
  - Dry skin [Not Recovered/Not Resolved]
  - Cataract [Not Recovered/Not Resolved]
  - Intentional product use issue [Unknown]

NARRATIVE: CASE EVENT DATE: 2016
